FAERS Safety Report 12389768 (Version 5)
Quarter: 2016Q3

REPORT INFORMATION
  Report Type: Report from Study
  Country: FR (occurrence: FR)
  Receive Date: 20160520
  Receipt Date: 20160909
  Transmission Date: 20161109
  Serious: Yes (Hospitalization)
  Sender: FDA-Public Use
  Company Number: FR-PFIZER INC-2016090108

PATIENT
  Age: 27 Year
  Sex: Male
  Weight: 66 kg

DRUGS (10)
  1. TRAMADOL. [Concomitant]
     Active Substance: TRAMADOL
     Indication: PAIN IN EXTREMITY
     Dosage: 100 MG, 2X/DAY
     Dates: start: 2011
  2. SOLUPRED /00016201/ [Concomitant]
     Active Substance: PREDNISOLONE
     Indication: MYOSITIS
     Dosage: 60 MG
     Dates: start: 2013
  3. SOLUPRED /00016201/ [Concomitant]
     Active Substance: PREDNISOLONE
     Dosage: 30 MG, DAILY
     Dates: start: 201602, end: 201602
  4. PARACETAMOL [Concomitant]
     Active Substance: ACETAMINOPHEN
     Indication: PAIN
     Dosage: 1000 MG, 2X/DAY
  5. SOLUPRED /00016201/ [Concomitant]
     Active Substance: PREDNISOLONE
     Indication: THROMBOSIS
     Dosage: 60 MG, UNK
     Dates: start: 20160202, end: 20160204
  6. SOLUPRED /00016201/ [Concomitant]
     Active Substance: PREDNISOLONE
     Dosage: 40 MG, UNK
     Dates: start: 20160205, end: 20160208
  7. SOLUPRED /00016201/ [Concomitant]
     Active Substance: PREDNISOLONE
     Dosage: 20 MG, DAILY
     Dates: start: 201602, end: 201602
  8. LOVENOX [Concomitant]
     Active Substance: ENOXAPARIN SODIUM
     Indication: THROMBOSIS PROPHYLAXIS
     Dosage: 0.6 ML, 2X/DAY
     Dates: start: 2006
  9. TRAMADOL. [Concomitant]
     Active Substance: TRAMADOL
     Dosage: 50 MG, AS NEEDED
  10. SIROLIMUS. [Suspect]
     Active Substance: SIROLIMUS
     Dosage: 1.5 MG, 1X/DAY
     Dates: start: 20151201, end: 20160212

REACTIONS (2)
  - Juvenile idiopathic arthritis [Recovering/Resolving]
  - Erysipelas [Recovered/Resolved]

NARRATIVE: CASE EVENT DATE: 20160202
